FAERS Safety Report 20643896 (Version 10)
Quarter: 2022Q4

REPORT INFORMATION
  Report Type: Report from Study
  Country: US (occurrence: US)
  Receive Date: 20220328
  Receipt Date: 20221220
  Transmission Date: 20230113
  Serious: Yes (Other)
  Sender: FDA-Public Use
  Company Number: US-NOVARTISTESTPH-NVSC2022US068886

PATIENT
  Age: 58 Year
  Sex: Female
  Weight: 84.807 kg

DRUGS (3)
  1. TREPROSTINIL [Suspect]
     Active Substance: TREPROSTINIL
     Indication: Pulmonary arterial hypertension
     Dosage: 49 NG/KG/MIN, CONT
     Route: 058
     Dates: start: 20220111
  2. TREPROSTINIL [Suspect]
     Active Substance: TREPROSTINIL
     Dosage: 49 NG/KG/MIN, CONT
     Route: 058
  3. AMLODIPINE [Concomitant]
     Active Substance: AMLODIPINE BESYLATE
     Indication: Product used for unknown indication
     Dosage: UNK
     Route: 065

REACTIONS (13)
  - Breast cancer [Unknown]
  - Seasonal allergy [Unknown]
  - Somnolence [Unknown]
  - Dyspnoea [Unknown]
  - Injection site streaking [Unknown]
  - Injection site warmth [Unknown]
  - Injection site infection [Recovered/Resolved]
  - Injection site infection [Unknown]
  - Injection site erythema [Unknown]
  - Injection site pain [Unknown]
  - Product dose omission issue [Unknown]
  - Wrong technique in product usage process [Unknown]
  - Product administered at inappropriate site [Unknown]

NARRATIVE: CASE EVENT DATE: 20220612
